FAERS Safety Report 7734888-3 (Version None)
Quarter: 2011Q3

REPORT INFORMATION
  Report Type: 
  Country: None (occurrence: None)
  Receive Date: 20110907
  Receipt Date: 20110827
  Transmission Date: 20111222
  Serious: Yes (Hospitalization)
  Sender: FDA-Public Use
  Company Number: PHHY2011PK78204

PATIENT
  Age: 35 Year
  Sex: Male

DRUGS (3)
  1. CYCLOSPORINE [Suspect]
     Indication: RENAL TRANSPLANT
  2. AZATHIOPRINE [Concomitant]
  3. PREDNISONE [Concomitant]

REACTIONS (18)
  - HYPOTENSION [None]
  - GENERAL PHYSICAL HEALTH DETERIORATION [None]
  - LETHARGY [None]
  - BLOOD CREATININE INCREASED [None]
  - CARDIAC VALVE VEGETATION [None]
  - ASTHENIA [None]
  - CHILLS [None]
  - HERPES ZOSTER [None]
  - PSEUDOMONAS INFECTION [None]
  - ABDOMINAL PAIN UPPER [None]
  - PYREXIA [None]
  - PALLOR [None]
  - AORTIC VALVE INCOMPETENCE [None]
  - ENDOCARDITIS PSEUDOMONAL [None]
  - SPLENIC INFARCTION [None]
  - CARDIAC MURMUR [None]
  - CHRONIC ALLOGRAFT NEPHROPATHY [None]
  - HAEMOGLOBIN DECREASED [None]
